FAERS Safety Report 16973454 (Version 1)
Quarter: 2019Q4

REPORT INFORMATION
  Report Type: Spontaneous
  Country: DE (occurrence: DE)
  Receive Date: 20191030
  Receipt Date: 20191030
  Transmission Date: 20200122
  Serious: Yes (Other)
  Sender: FDA-Public Use
  Company Number: DE-TORRENT-00015848

PATIENT
  Age: 71 Year
  Sex: Male
  Weight: 83 kg

DRUGS (1)
  1. CELECOXIB. [Suspect]
     Active Substance: CELECOXIB
     Indication: PRODUCT USED FOR UNKNOWN INDICATION
     Dosage: ORALLY ONCE PER ?WEEK
     Route: 048
     Dates: start: 20191027

REACTIONS (1)
  - Urethral haemorrhage [Unknown]

NARRATIVE: CASE EVENT DATE: 20191027
